FAERS Safety Report 14144651 (Version 3)
Quarter: 2018Q1

REPORT INFORMATION
  Report Type: Report from Study
  Country: None (occurrence: CH)
  Receive Date: 20171031
  Receipt Date: 20180221
  Transmission Date: 20180508
  Serious: Yes (Hospitalization, Other)
  Sender: FDA-Public Use
  Company Number: CH-ABBVIE-17K-151-2142885-00

PATIENT
  Age: 61 Year
  Sex: Male
  Weight: 55 kg

DRUGS (16)
  1. CREON [Concomitant]
     Active Substance: PANCRELIPASE AMYLASE\PANCRELIPASE LIPASE\PANCRELIPASE PROTEASE
     Indication: PANCREATITIS CHRONIC
     Dosage: 2 PER MAIN MEAL, 1 PER MEAL IN BETWEEN
     Route: 048
  2. REMERON [Concomitant]
     Active Substance: MIRTAZAPINE
     Indication: PRODUCT USED FOR UNKNOWN INDICATION
     Dosage: FOR THE NIGHT
  3. BECOZYME C FORTE [Concomitant]
     Indication: PRODUCT USED FOR UNKNOWN INDICATION
     Dosage: IN THE MORNING
     Route: 048
  4. BENERVA [Concomitant]
     Active Substance: THIAMINE
     Indication: PRODUCT USED FOR UNKNOWN INDICATION
     Dosage: IN THE MORNING
     Route: 048
  5. SUPRADYN ENERGY [Concomitant]
     Active Substance: MINERALS\VITAMINS
     Indication: PRODUCT USED FOR UNKNOWN INDICATION
     Dosage: IN THE EVENING
     Route: 048
  6. ESOMEP MUPS [Concomitant]
     Active Substance: OMEPRAZOLE
     Indication: PRODUCT USED FOR UNKNOWN INDICATION
     Dosage: IN THE MORNING
     Route: 048
  7. NOVORAPID [Concomitant]
     Active Substance: INSULIN ASPART
     Indication: PRODUCT USED FOR UNKNOWN INDICATION
     Dosage: ACCORDING TO SCHEME
  8. HUMIRA [Suspect]
     Active Substance: ADALIMUMAB
     Indication: PSORIASIS
     Route: 058
     Dates: start: 20141114
  9. ASPIRIN CARDIO [Concomitant]
     Active Substance: ASPIRIN
     Indication: PRODUCT USED FOR UNKNOWN INDICATION
     Dosage: IN THE MORNING
     Route: 048
  10. ATORVA PFIZER [Concomitant]
     Active Substance: ATORVASTATIN
     Indication: PRODUCT USED FOR UNKNOWN INDICATION
     Dosage: IN THE MORNING
     Route: 048
  11. HUMIRA [Suspect]
     Active Substance: ADALIMUMAB
     Route: 058
  12. RESOURCE 2.0+FIBRE [Concomitant]
     Indication: PRODUCT USED FOR UNKNOWN INDICATION
     Dosage: 1 / MORNING, 1/ EVEN. WITH CREON
  13. ATACAND [Concomitant]
     Active Substance: CANDESARTAN CILEXETIL
     Indication: PRODUCT USED FOR UNKNOWN INDICATION
     Dosage: IN THE MORNING
     Route: 048
  14. VITAMIN D3 WILD [Concomitant]
     Active Substance: CHOLECALCIFEROL
     Indication: PRODUCT USED FOR UNKNOWN INDICATION
     Dosage: 500IE/DROP; FOR LUNCH TIME
     Route: 048
  15. TRESIBA [Concomitant]
     Active Substance: INSULIN DEGLUDEC
     Indication: PRODUCT USED FOR UNKNOWN INDICATION
     Dosage: 100 E/ML; 1 IN THE MORNING
     Route: 058
  16. SERESTA [Concomitant]
     Active Substance: OXAZEPAM
     Indication: PRODUCT USED FOR UNKNOWN INDICATION
     Dosage: AS NEEDED

REACTIONS (13)
  - Elliptocytosis [Unknown]
  - Gamma-glutamyltransferase increased [Unknown]
  - Red blood cell acanthocytes present [Unknown]
  - Malnutrition [Recovering/Resolving]
  - Lipase decreased [Unknown]
  - Poikilocytosis [Unknown]
  - Anaemia macrocytic [Unknown]
  - Aspartate aminotransferase increased [Unknown]
  - Alanine aminotransferase increased [Unknown]
  - Cachexia [Recovering/Resolving]
  - Red blood cell target cells present [Unknown]
  - Lymphocyte morphology abnormal [Unknown]
  - Pancreatitis chronic [Unknown]

NARRATIVE: CASE EVENT DATE: 20170914
